FAERS Safety Report 12322290 (Version 2)
Quarter: 2016Q2

REPORT INFORMATION
  Report Type: Spontaneous
  Country: PL (occurrence: PL)
  Receive Date: 20160502
  Receipt Date: 20160520
  Transmission Date: 20160815
  Serious: Yes (Death, Hospitalization)
  Sender: FDA-Public Use
  Company Number: PL-ACTELION-A-CH2016-135324

PATIENT
  Age: 33 Year
  Sex: Female

DRUGS (2)
  1. STAYVEER [Suspect]
     Active Substance: BOSENTAN
     Indication: PULMONARY ARTERIAL HYPERTENSION
     Dosage: UNK
     Route: 048
     Dates: start: 201410, end: 20160413
  2. GENTAMYCIN [Suspect]
     Active Substance: GENTAMICIN
     Indication: PNEUMONIA
     Route: 065

REACTIONS (3)
  - Haemodialysis [Unknown]
  - Pneumonia [Fatal]
  - Acute kidney injury [Fatal]

NARRATIVE: CASE EVENT DATE: 20160413
